FAERS Safety Report 8107147-7 (Version None)
Quarter: 2012Q1

REPORT INFORMATION
  Report Type: 
  Country: None (occurrence: None)
  Receive Date: 20120202
  Receipt Date: 20120130
  Transmission Date: 20120608
  Serious: Yes (Hospitalization)
  Sender: FDA-Public Use
  Company Number: US-PFIZER INC-2009237118

PATIENT
  Sex: Female
  Weight: 77.098 kg

DRUGS (7)
  1. CHANTIX [Suspect]
     Indication: SMOKING CESSATION THERAPY
     Dosage: 0.5MG, UNK
     Route: 048
     Dates: start: 20070101
  2. CHANTIX [Suspect]
     Dosage: UNK
     Route: 048
     Dates: end: 20110101
  3. ATENOLOL [Concomitant]
     Indication: HYPERTENSION
     Dosage: 40 MG, 1X/DAY
  4. CRESTOR [Concomitant]
     Indication: BLOOD CHOLESTEROL INCREASED
     Dosage: 20 MG, 1X/DAY
  5. CHANTIX [Suspect]
     Dosage: 1MG, UNK
     Route: 048
  6. CHANTIX [Suspect]
     Dosage: 0.5 MG, 1X/DAY
     Route: 048
  7. AMBIEN [Suspect]
     Dosage: UNK

REACTIONS (5)
  - VIRAL INFECTION [None]
  - TREMOR [None]
  - LUNG DISORDER [None]
  - HYPOAESTHESIA ORAL [None]
  - HYPOAESTHESIA [None]
